FAERS Safety Report 6676332-3 (Version None)
Quarter: 2010Q2

REPORT INFORMATION
  Report Type: 
  Country: None (occurrence: None)
  Receive Date: 20100408
  Receipt Date: 20100325
  Transmission Date: 20101027
  Serious: Yes (Hospitalization)
  Sender: FDA-Public Use
  Company Number: 006703

PATIENT
  Sex: Female
  Weight: 98.8 kg

DRUGS (7)
  1. CERTOLIZUMAB PEGOL [Suspect]
     Indication: RHEUMATOID ARTHRITIS
     Dosage: 200 MG 1X/2 WEEKS SUBCUTANEOUS
     Route: 058
     Dates: start: 20090701, end: 20091230
  2. METHOTREXATE [Concomitant]
  3. PLAQUENIL [Concomitant]
  4. BENAZEPRIL HYDROCHLORIDE [Concomitant]
  5. HYDROCHLOROTHIAZIDE [Concomitant]
  6. FOLIC ACID [Concomitant]
  7. PRILOSEC [Concomitant]

REACTIONS (11)
  - CARDIOMEGALY [None]
  - CHEST PAIN [None]
  - COUGH [None]
  - DYSPNOEA [None]
  - EFFUSION [None]
  - LYMPHADENOPATHY [None]
  - PNEUMONIA [None]
  - PNEUMONITIS [None]
  - PULMONARY GRANULOMA [None]
  - SINUS TACHYCARDIA [None]
  - THROAT IRRITATION [None]
